FAERS Safety Report 11299291 (Version 1)
Quarter: 2015Q3

REPORT INFORMATION
  Report Type: Spontaneous
  Country: US (occurrence: US)
  Receive Date: 20150722
  Receipt Date: 20150722
  Transmission Date: 20151125
  Serious: No
  Sender: FDA-Public Use
  Company Number: US-ELI_LILLY_AND_COMPANY-US201209003103

PATIENT
  Sex: Female

DRUGS (5)
  1. EFFIENT [Suspect]
     Active Substance: PRASUGREL HYDROCHLORIDE
     Indication: STENT PLACEMENT
     Dosage: 5 MG, QD
     Dates: start: 20111117
  2. CARVEDILOL. [Concomitant]
     Active Substance: CARVEDILOL
  3. METHOTREXATE [Concomitant]
     Active Substance: METHOTREXATE
     Indication: RHEUMATOID ARTHRITIS
  4. ASPIRIN. [Concomitant]
     Active Substance: ASPIRIN
  5. PREDNISONE. [Concomitant]
     Active Substance: PREDNISONE

REACTIONS (3)
  - Contusion [Recovering/Resolving]
  - Haemorrhage [Recovering/Resolving]
  - Incorrect product storage [Unknown]
